FAERS Safety Report 24384940 (Version 1)
Quarter: 2024Q4

REPORT INFORMATION
  Report Type: Spontaneous
  Country: DE (occurrence: DE)
  Receive Date: 20241001
  Receipt Date: 20241001
  Transmission Date: 20250115
  Serious: Yes (Life-Threatening, Other)
  Sender: BIOVITRUM
  Company Number: DE-BIOVITRUM-2024-DE-012596

PATIENT
  Sex: Male

DRUGS (1)
  1. ANAKINRA [Suspect]
     Active Substance: ANAKINRA
     Indication: Still^s disease

REACTIONS (3)
  - Haemophagocytic lymphohistiocytosis [Unknown]
  - Streptococcal infection [Unknown]
  - Drug ineffective [Unknown]
